FAERS Safety Report 8902040 (Version 1)
Quarter: 2012Q4

REPORT INFORMATION
  Report Type: 
  Country: AR (occurrence: AR)
  Receive Date: 20121112
  Receipt Date: 20121112
  Transmission Date: 20130627
  Serious: Yes (Death)
  Sender: FDA-Public Use
  Company Number: PHHY2012AR103637

PATIENT
  Sex: Male

DRUGS (1)
  1. ONBREZ [Suspect]

REACTIONS (1)
  - Cardiac arrest [Fatal]
